FAERS Safety Report 5522636-7 (Version None)
Quarter: 2007Q4

REPORT INFORMATION
  Report Type: 
  Country: None (occurrence: None)
  Receive Date: 20071120
  Receipt Date: 20071110
  Transmission Date: 20080405
  Serious: Yes (Other)
  Sender: FDA-Public Use
  Company Number: US-PFIZER INC-2007095348

PATIENT
  Sex: Male
  Weight: 82 kg

DRUGS (7)
  1. TIKOSYN [Suspect]
     Indication: ATRIAL FIBRILLATION
     Route: 048
     Dates: start: 20071106, end: 20071101
  2. TIKOSYN [Suspect]
     Route: 048
  3. SULAR [Concomitant]
  4. WARFARIN SODIUM [Concomitant]
  5. LISINOPRIL [Concomitant]
  6. SIMVASTATIN [Concomitant]
  7. DIGITEK [Concomitant]

REACTIONS (5)
  - ANOREXIA [None]
  - ATRIAL FIBRILLATION [None]
  - DIZZINESS [None]
  - FATIGUE [None]
  - GASTROINTESTINAL MOTILITY DISORDER [None]
